FAERS Safety Report 7878780-2 (Version None)
Quarter: 2011Q4

REPORT INFORMATION
  Report Type: 
  Country: None (occurrence: None)
  Receive Date: 20111028
  Receipt Date: 20111014
  Transmission Date: 20120403
  Serious: Yes (Hospitalization, Other)
  Sender: FDA-Public Use
  Company Number: JPI-P-017063

PATIENT
  Age: 62 Year
  Sex: Male
  Weight: 127.0072 kg

DRUGS (7)
  1. WARFARIN SODIUM [Concomitant]
  2. MULTIPLE UNSPECIFIED MEDICATIONS [Concomitant]
  3. STERIODS [Suspect]
     Indication: STAPHYLOCOCCAL INFECTION
     Dates: start: 20100429
  4. XYREM [Suspect]
     Indication: CATAPLEXY
     Dosage: 10 GM (5 GM, 2 IN 1 D), ORAL; 12 GM (6 GM, 2 IN 1 D), ORAL
     Route: 048
     Dates: start: 20110513
  5. XYREM [Suspect]
     Indication: CATAPLEXY
     Dosage: 10 GM (5 GM, 2 IN 1 D), ORAL; 12 GM (6 GM, 2 IN 1 D), ORAL
     Route: 048
     Dates: start: 20020923
  6. UNSPECIFIED THYROID MEDICINE [Concomitant]
  7. UNSPECIFIED HEART MEDICATIONS (UNKNOWN) [Suspect]
     Indication: CARDIAC DISORDER
     Dosage: ORAL
     Route: 048

REACTIONS (8)
  - HEART RATE INCREASED [None]
  - STAPHYLOCOCCAL INFECTION [None]
  - WEIGHT INCREASED [None]
  - FATIGUE [None]
  - LOSS OF CONSCIOUSNESS [None]
  - MYOCARDIAL INFARCTION [None]
  - DEHYDRATION [None]
  - STRESS [None]
